FAERS Safety Report 8363643-9 (Version None)
Quarter: 2012Q2

REPORT INFORMATION
  Report Type: 
  Country: None (occurrence: None)
  Receive Date: 20120516
  Receipt Date: 20120510
  Transmission Date: 20120825
  Serious: Yes (Hospitalization)
  Sender: FDA-Public Use
  Company Number: US-NOVOPROD-329793

PATIENT
  Age: 80 Year
  Sex: Male

DRUGS (5)
  1. LANTUS [Suspect]
     Indication: TYPE 2 DIABETES MELLITUS
     Dosage: 20 IU, QD
     Dates: start: 20090101, end: 20091201
  2. NOVOLIN N [Suspect]
     Indication: TYPE 2 DIABETES MELLITUS
     Dosage: UNK
     Route: 058
     Dates: start: 20090101
  3. NOVOLOG [Concomitant]
     Indication: TYPE 2 DIABETES MELLITUS
     Route: 058
  4. METFORMIN HCL [Concomitant]
     Indication: TYPE 2 DIABETES MELLITUS
  5. LANTUS [Suspect]
     Dosage: 20 IU, QID

REACTIONS (3)
  - LEG AMPUTATION [None]
  - NEUROPATHY PERIPHERAL [None]
  - POOR PERIPHERAL CIRCULATION [None]
